FAERS Safety Report 5204767-4 (Version None)
Quarter: 2007Q1

REPORT INFORMATION
  Report Type: 
  Country: None (occurrence: None)
  Receive Date: 20070110
  Receipt Date: 20060713
  Transmission Date: 20070707
  Serious: Yes (Hospitalization)
  Sender: FDA-Public Use
  Company Number: US-BRISTOL-MYERS SQUIBB COMPANY-13441712

PATIENT
  Age: 34 Year
  Sex: Male
  Weight: 110 kg

DRUGS (5)
  1. ABILIFY [Suspect]
     Indication: SCHIZOAFFECTIVE DISORDER
     Dates: start: 20010101, end: 20060601
  2. ABILIFY [Suspect]
     Indication: DEPRESSION
     Dates: start: 20010101, end: 20060601
  3. MONOPRIL [Concomitant]
  4. NIFEDIPINE [Concomitant]
  5. DEPAKOTE [Concomitant]

REACTIONS (7)
  - ACTIVITIES OF DAILY LIVING IMPAIRED [None]
  - BIPOLAR I DISORDER [None]
  - BLOOD PRESSURE INCREASED [None]
  - COMMUNICATION DISORDER [None]
  - DECREASED ACTIVITY [None]
  - INCOHERENT [None]
  - MEMORY IMPAIRMENT [None]
